FAERS Safety Report 6494300-1 (Version None)
Quarter: 2009Q4

REPORT INFORMATION
  Report Type: 
  Country: None (occurrence: None)
  Receive Date: 20091214
  Receipt Date: 20090205
  Transmission Date: 20100525
  Serious: No
  Sender: FDA-Public Use
  Company Number: US-BRISTOL-MYERS SQUIBB COMPANY-14494900

PATIENT
  Age: 51 Year
  Sex: Female
  Weight: 50 kg

DRUGS (6)
  1. ABILIFY [Suspect]
     Indication: BIPOLAR DISORDER
     Dates: start: 20090108
  2. ZOLOFT [Concomitant]
  3. AMBIEN [Concomitant]
  4. KLONOPIN [Concomitant]
  5. PHENERGAN HCL [Concomitant]
  6. ARTANE [Concomitant]

REACTIONS (4)
  - JOINT STIFFNESS [None]
  - NAUSEA [None]
  - PARKINSONIAN GAIT [None]
  - VOMITING [None]
